FAERS Safety Report 13786195 (Version 1)
Quarter: 2017Q3

REPORT INFORMATION
  Report Type: Spontaneous
  Country: US (occurrence: US)
  Receive Date: 20170725
  Receipt Date: 20170725
  Transmission Date: 20171127
  Serious: Yes (Hospitalization)
  Sender: FDA-Public Use
  Company Number: US-ROCHE-1967756

PATIENT
  Age: 44 Year
  Sex: Female

DRUGS (2)
  1. DIAZEPAM. [Suspect]
     Active Substance: DIAZEPAM
     Indication: PARALYSIS
     Dosage: 15-180 MG PER DAY
     Route: 042
  2. CURARE. [Suspect]
     Active Substance: CURARE
     Indication: PARALYSIS
     Dosage: 6-27 MG PER HOUR
     Route: 042

REACTIONS (1)
  - Myositis ossificans [Recovering/Resolving]
